FAERS Safety Report 25957376 (Version 1)
Quarter: 2025Q4

REPORT INFORMATION
  Report Type: Spontaneous
  Country: CN (occurrence: CN)
  Receive Date: 20251024
  Receipt Date: 20251024
  Transmission Date: 20260118
  Serious: Yes (Life-Threatening, Hospitalization)
  Sender: B. BRAUN MEDICAL INC.
  Company Number: None

PATIENT
  Age: 54 Year
  Sex: Male
  Weight: 75 kg

DRUGS (4)
  1. PROPOFOL [Suspect]
     Active Substance: PROPOFOL
     Indication: Sedative therapy
  2. PROPOFOL [Suspect]
     Active Substance: PROPOFOL
     Dosage: BEFORE COLONOSCOPY
  3. LIDOCAINE [Suspect]
     Active Substance: LIDOCAINE
     Indication: Sedative therapy
  4. BUTORPHANOL [Suspect]
     Active Substance: BUTORPHANOL
     Indication: Sedative therapy

REACTIONS (2)
  - Bezold-Jarisch reflex [Recovered/Resolved]
  - Cardiac arrest [Recovered/Resolved]
